FAERS Safety Report 7786480-2 (Version None)
Quarter: 2011Q3

REPORT INFORMATION
  Report Type: 
  Country: None (occurrence: None)
  Receive Date: 20110929
  Receipt Date: 20110920
  Transmission Date: 20111222
  Serious: Yes (Hospitalization)
  Sender: FDA-Public Use
  Company Number: FR-PFIZER INC-2011025671

PATIENT
  Age: 70 Year
  Sex: Female

DRUGS (2)
  1. ATARAX [Suspect]
     Indication: HYPERSENSITIVITY
  2. ATARAX [Suspect]
     Indication: ANXIETY
     Dosage: 25 MG OR 12.5 MG DAILY
     Route: 048

REACTIONS (1)
  - AORTIC DILATATION [None]
